FAERS Safety Report 23112965 (Version 1)
Quarter: 2023Q4

REPORT INFORMATION
  Report Type: Spontaneous
  Country: CN (occurrence: CN)
  Receive Date: 20231027
  Receipt Date: 20231027
  Transmission Date: 20240109
  Serious: Yes (Hospitalization, Other)
  Sender: FDA-Public Use
  Company Number: CN-GLAXOSMITHKLINE-CNCH2023APC049874

PATIENT

DRUGS (7)
  1. IBUPROFEN [Suspect]
     Active Substance: IBUPROFEN
     Indication: Nasopharyngitis
     Dosage: 10 ML, TID
     Dates: start: 202111, end: 202111
  2. IBUPROFEN [Suspect]
     Active Substance: IBUPROFEN
     Indication: Pyrexia
  3. CEFUROXIME [Suspect]
     Active Substance: CEFUROXIME
     Indication: Nasopharyngitis
     Dosage: 1.5 G, BID
     Dates: start: 202111, end: 202111
  4. RIBAVIRIN [Suspect]
     Active Substance: RIBAVIRIN
     Indication: Nasopharyngitis
     Dosage: UNK, TID, 1 SACHET
     Dates: start: 202111, end: 202111
  5. KETOTIFEN [Suspect]
     Active Substance: KETOTIFEN
     Indication: Nasopharyngitis
     Dosage: 1 DF, TID
     Dates: start: 202111, end: 202111
  6. CEFTRIAXONE [Suspect]
     Active Substance: CEFTRIAXONE\CEFTRIAXONE SODIUM
     Indication: Infection
     Dosage: 2 G, QD
     Dates: start: 202111, end: 202111
  7. PRANOPROFEN [Suspect]
     Active Substance: PRANOPROFEN
     Indication: Injury corneal
     Dosage: UNK
     Dates: start: 202111, end: 202111

REACTIONS (35)
  - Epidermolysis bullosa [Recovered/Resolved]
  - Rash [Recovered/Resolved]
  - Toxic epidermal necrolysis [Recovered/Resolved]
  - Pneumonia [Recovered/Resolved]
  - Pneumonitis [Recovered/Resolved]
  - Sepsis [Recovered/Resolved]
  - Hyperpyrexia [Recovered/Resolved]
  - Seizure [Recovered/Resolved]
  - Erythema [Recovered/Resolved]
  - Nausea [Recovered/Resolved]
  - Vomiting [Recovered/Resolved]
  - Condition aggravated [Recovered/Resolved]
  - Confusional state [Recovered/Resolved]
  - Blister [Recovered/Resolved]
  - Pyrexia [Recovered/Resolved]
  - Pain [Recovered/Resolved]
  - Aphasia [Recovered/Resolved]
  - Eyelid function disorder [Recovered/Resolved]
  - Fracture blisters [Recovered/Resolved]
  - Eye discharge [Recovered/Resolved]
  - Conjunctival hyperaemia [Recovered/Resolved]
  - Lip ulceration [Recovered/Resolved]
  - Lip erosion [Recovered/Resolved]
  - Mouth ulceration [Recovered/Resolved]
  - Oral mucosa erosion [Recovered/Resolved]
  - Tongue ulceration [Recovered/Resolved]
  - Tongue erosion [Recovered/Resolved]
  - Tonsillar hypertrophy [Recovered/Resolved]
  - Pharyngeal disorder [Recovered/Resolved]
  - Hepatic steatosis [Recovered/Resolved]
  - Skin injury [Recovered/Resolved]
  - Keratitis [Recovered/Resolved]
  - Injury corneal [Recovered/Resolved]
  - Conjunctival disorder [Recovered/Resolved]
  - Skin ulcer [Recovered/Resolved]

NARRATIVE: CASE EVENT DATE: 20211101
